FAERS Safety Report 4576482-1 (Version None)
Quarter: 2005Q1

REPORT INFORMATION
  Report Type: 
  Country: None (occurrence: None)
  Receive Date: 20050207
  Receipt Date: 20050127
  Transmission Date: 20050727
  Serious: No
  Sender: FDA-Public Use
  Company Number: 2004UW21574

PATIENT
  Age: 42 Year
  Sex: Female

DRUGS (7)
  1. SEROQUEL [Suspect]
     Dosage: 1300 MG PO
     Route: 048
  2. SEROQUEL [Suspect]
     Dosage: 900 MG DAILY PO
     Route: 048
  3. SEROQUEL [Suspect]
     Dosage: 150 MG PO
     Route: 048
  4. SEROQUEL [Suspect]
     Dosage: 300 MG PO
     Route: 048
  5. SEROQUEL [Suspect]
     Dosage: 600 MG PO
     Route: 048
  6. DEPAKOTE [Concomitant]
  7. CLINDAMYCIN [Concomitant]

REACTIONS (4)
  - NEUTROPENIA [None]
  - SINUSITIS [None]
  - SKIN INFECTION [None]
  - URINARY TRACT INFECTION [None]
